FAERS Safety Report 8885919 (Version 2)
Quarter: 2012Q4

REPORT INFORMATION
  Report Type: 
  Country: US (occurrence: US)
  Receive Date: 20121102
  Receipt Date: 20121130
  Transmission Date: 20130627
  Serious: Yes (Other)
  Sender: FDA-Public Use
  Company Number: US-JNJFOC-20121015203

PATIENT
  Sex: Male
  Weight: 66.7 kg

DRUGS (1)
  1. REMICADE [Suspect]
     Indication: CROHN^S DISEASE
     Route: 042
     Dates: start: 201108

REACTIONS (4)
  - Cognitive disorder [Unknown]
  - Mental impairment [Not Recovered/Not Resolved]
  - Depression [Unknown]
  - Educational problem [Not Recovered/Not Resolved]
